FAERS Safety Report 25727056 (Version 1)
Quarter: 2025Q3

REPORT INFORMATION
  Report Type: Spontaneous
  Country: US (occurrence: None)
  Receive Date: 20250825
  Receipt Date: 20250825
  Transmission Date: 20251021
  Serious: Yes (Other)
  Sender: FDA-CTU
  Company Number: None

PATIENT
  Age: 22 Year
  Sex: Male
  Weight: 96.9 kg

DRUGS (3)
  1. RISPERIDONE [Suspect]
     Active Substance: RISPERIDONE
     Indication: Schizophrenia
     Dosage: 8 MG DILY ORAL ?
     Route: 048
     Dates: start: 20241018, end: 20250612
  2. QUETIAPINE [Suspect]
     Active Substance: QUETIAPINE
  3. risperidone 1 mg q12hr PRN [Concomitant]

REACTIONS (5)
  - Weight increased [None]
  - Gynaecomastia [None]
  - Sexual dysfunction [None]
  - Breast mass [None]
  - Hyperprolactinaemia [None]

NARRATIVE: CASE EVENT DATE: 20250425
